FAERS Safety Report 8979196 (Version 1)
Quarter: 2012Q4

REPORT INFORMATION
  Report Type: 
  Country: EC (occurrence: EC)
  Receive Date: 20121221
  Receipt Date: 20121221
  Transmission Date: 20130627
  Serious: Yes (Other)
  Sender: FDA-Public Use
  Company Number: EC-PFIZER INC-2012324547

PATIENT
  Age: 70 Year
  Sex: Female

DRUGS (1)
  1. ZOLOFT [Suspect]
     Indication: DEPRESSION
     Dosage: 50 mg, UNK
     Route: 048
     Dates: start: 201210

REACTIONS (4)
  - Asphyxia [Unknown]
  - Tachycardia [Unknown]
  - Dry mouth [Unknown]
  - Dysgeusia [Unknown]
